APPROVED DRUG PRODUCT: ZONISAMIDE
Active Ingredient: ZONISAMIDE
Strength: 100MG
Dosage Form/Route: CAPSULE;ORAL
Application: A077644 | Product #003
Applicant: UPSHER SMITH LABORATORIES LLC
Approved: Dec 22, 2005 | RLD: No | RS: No | Type: DISCN